FAERS Safety Report 12871855 (Version 1)
Quarter: 2016Q4

REPORT INFORMATION
  Report Type: Spontaneous
  Country: DE (occurrence: DE)
  Receive Date: 20161021
  Receipt Date: 20161021
  Transmission Date: 20170207
  Serious: Yes (Hospitalization)
  Sender: FDA-Public Use
  Company Number: DE-DRREDDYS-GER/GER/16/0084060

PATIENT
  Age: 59 Year
  Sex: Female

DRUGS (3)
  1. CIPROBETA 500 MG FILMTABLETTEN [Suspect]
     Active Substance: CIPROFLOXACIN
     Indication: EAR INFECTION
     Route: 048
     Dates: start: 20160928, end: 20160929
  2. L-THYROXIN 75 HENNING [Concomitant]
     Indication: GOITRE
     Route: 048
  3. AMLODIPIN BESIL DEXCEL 10 MG TAB [Concomitant]
     Indication: HYPERTENSION
     Route: 048

REACTIONS (1)
  - Chest pain [Recovering/Resolving]

NARRATIVE: CASE EVENT DATE: 20160930
